FAERS Safety Report 6835707 (Version 4)
Quarter: 2013Q1

REPORT INFORMATION
  Report Type: Report from Study
  Country: US (occurrence: US)
  Receive Date: 20081208
  Receipt Date: 20130226
  Transmission Date: 20140127
  Serious: Yes (Other)
  Sender: FDA-Public Use
  Company Number: US-BIOGENIDEC-2008BI011383

PATIENT
  Age: 35 Year
  Sex: Female

DRUGS (5)
  1. TYSABRI [Suspect]
     Indication: MULTIPLE SCLEROSIS
     Dosage: BASED ON LMP
     Route: 042
     Dates: start: 20070523, end: 20080326
  2. TYSABRI [Suspect]
     Indication: MULTIPLE SCLEROSIS
     Route: 042
     Dates: start: 20081029
  3. DEPAKOTE [Concomitant]
     Indication: HEADACHE
     Dates: end: 200804
  4. BIRTH CONTROL PILLS [Concomitant]
     Indication: CONTRACEPTION
     Route: 048
     Dates: end: 200804
  5. CIPROFLOXACIN [Concomitant]
     Indication: URINARY TRACT INFECTION
     Dates: start: 200803, end: 200803

REACTIONS (2)
  - Premature delivery [Recovered/Resolved]
  - Pregnancy [Recovered/Resolved]
